FAERS Safety Report 13371743 (Version 1)
Quarter: 2017Q1

REPORT INFORMATION
  Report Type: Report from Study
  Country: None (occurrence: VE)
  Receive Date: 20170325
  Receipt Date: 20170325
  Transmission Date: 20170429
  Serious: Yes (Disabling, Other)
  Sender: FDA-Public Use
  Company Number: VE-ABBVIE-17P-178-1918229-00

PATIENT
  Sex: Female

DRUGS (6)
  1. HUMIRA [Suspect]
     Active Substance: ADALIMUMAB
     Indication: SPONDYLITIS
     Route: 058
     Dates: start: 201601, end: 20160728
  2. BISOPROLOL [Concomitant]
     Active Substance: BISOPROLOL
     Indication: HYPERTENSION
  3. CORAZEM [Concomitant]
     Indication: HYPERTENSION
  4. ENBREL [Suspect]
     Active Substance: ETANERCEPT
     Indication: PRODUCT USED FOR UNKNOWN INDICATION
     Route: 065
     Dates: start: 201701
  5. CARVEDILOL. [Concomitant]
     Active Substance: CARVEDILOL
     Indication: HYPERTENSION
  6. CLOPIDOGREL [Concomitant]
     Active Substance: CLOPIDOGREL BISULFATE
     Indication: HYPERTENSION

REACTIONS (7)
  - Impaired work ability [Unknown]
  - Arthralgia [Not Recovered/Not Resolved]
  - Hypertension [Recovering/Resolving]
  - Spondylitis [Unknown]
  - Hypertensive cardiomyopathy [Unknown]
  - Tension [Recovering/Resolving]
  - Drug ineffective [Unknown]
